FAERS Safety Report 7337147-6 (Version None)
Quarter: 2011Q1

REPORT INFORMATION
  Report Type: 
  Country: None (occurrence: None)
  Receive Date: 20110224
  Receipt Date: 20110208
  Transmission Date: 20110831
  Serious: Yes (Other)
  Sender: FDA-Public Use
  Company Number: 2009S1003832

PATIENT
  Age: 66 Year
  Sex: Male
  Weight: 96.6162 kg

DRUGS (6)
  1. PHOSPHOSODA FLAVOR NOT SPECIFIED [Suspect]
     Indication: COLONOSCOPY
     Dosage: PO
     Route: 048
     Dates: start: 20080220, end: 20080220
  2. QUESTRAN [Concomitant]
  3. PAXIL [Concomitant]
  4. LIBRAX [Concomitant]
  5. PROTONIX [Concomitant]
  6. CLONAZEPAM [Concomitant]

REACTIONS (7)
  - COLITIS [None]
  - ABDOMINAL SEPSIS [None]
  - LARGE INTESTINE PERFORATION [None]
  - CARDIAC FAILURE CONGESTIVE [None]
  - RENAL FAILURE ACUTE [None]
  - HYPOVOLAEMIA [None]
  - PERITONITIS [None]
